FAERS Safety Report 5554836-4 (Version None)
Quarter: 2007Q4

REPORT INFORMATION
  Report Type: 
  Country: None (occurrence: None)
  Receive Date: 20071213
  Receipt Date: 20071203
  Transmission Date: 20080405
  Serious: Yes (Hospitalization)
  Sender: FDA-Public Use
  Company Number: JP-MERCK-0705USA03695

PATIENT
  Age: 59 Year
  Sex: Male

DRUGS (5)
  1. FOSAMAX [Concomitant]
     Indication: OSTEOPOROSIS
     Route: 048
  2. CORTONE [Suspect]
     Indication: STEROID THERAPY
     Route: 048
  3. CORTONE [Suspect]
     Route: 048
  4. RABEPRAZOLE SODIUM [Concomitant]
     Route: 048
  5. LIPITOR [Concomitant]
     Indication: HYPERLIPIDAEMIA
     Route: 048

REACTIONS (6)
  - ANAEMIA [None]
  - ANAL INFLAMMATION [None]
  - BLOOD PRESSURE DECREASED [None]
  - GASTRITIS [None]
  - NASAL MUCOSAL DISORDER [None]
  - OSTEOPOROSIS [None]
